FAERS Safety Report 5860214-0 (Version None)
Quarter: 2008Q3

REPORT INFORMATION
  Report Type: 
  Country: None (occurrence: None)
  Receive Date: 20080827
  Receipt Date: 20070808
  Transmission Date: 20090109
  Serious: No
  Sender: FDA-Public Use
  Company Number: US-ABBOTT-07P-163-0377473-00

PATIENT
  Sex: Female

DRUGS (11)
  1. NIASPAN [Suspect]
     Indication: DRUG USE FOR UNKNOWN INDICATION
     Route: 048
     Dates: start: 20070515, end: 20070725
  2. NIASPAN [Suspect]
     Route: 048
     Dates: start: 20060716, end: 20070515
  3. NIASPAN [Suspect]
     Route: 048
     Dates: start: 20070725, end: 20070804
  4. NIASPAN [Suspect]
     Route: 048
     Dates: start: 20070804
  5. EZETIMIBE [Concomitant]
     Indication: DRUG USE FOR UNKNOWN INDICATION
  6. MVI WITH IRON [Concomitant]
     Indication: DRUG USE FOR UNKNOWN INDICATION
  7. CALCIUM AND MAGNESIUM [Concomitant]
     Indication: DRUG USE FOR UNKNOWN INDICATION
  8. ERGOCALCIFEROL [Concomitant]
     Indication: DRUG USE FOR UNKNOWN INDICATION
  9. CO Q 10 [Concomitant]
     Indication: DRUG USE FOR UNKNOWN INDICATION
  10. GLUCOSAMINE [Concomitant]
     Indication: DRUG USE FOR UNKNOWN INDICATION
  11. ACETYLSALICYLIC ACID SRT [Concomitant]
     Indication: DRUG USE FOR UNKNOWN INDICATION

REACTIONS (5)
  - FATIGUE [None]
  - HYPERAESTHESIA [None]
  - PAIN [None]
  - PRURITUS [None]
  - RASH [None]
